FAERS Safety Report 18052479 (Version 2)
Quarter: 2020Q3

REPORT INFORMATION
  Report Type: Spontaneous
  Country: US (occurrence: US)
  Receive Date: 20200721
  Receipt Date: 20200727
  Transmission Date: 20201103
  Serious: Yes (Disabling, Other)
  Sender: FDA-Public Use
  Company Number: US-PURDUE-USA-2020-0157242

PATIENT
  Sex: Male

DRUGS (3)
  1. OXYCONTIN [Suspect]
     Active Substance: OXYCODONE HYDROCHLORIDE
     Indication: SHOULDER OPERATION
     Dosage: UNKNOWN
     Route: 048
  2. XANAX [Suspect]
     Active Substance: ALPRAZOLAM
     Indication: PRODUCT USED FOR UNKNOWN INDICATION
     Dosage: UNKNOWN
     Route: 065
  3. MARIJUANA [Suspect]
     Active Substance: CANNABIS SATIVA SUBSP. INDICA TOP
     Indication: PRODUCT USED FOR UNKNOWN INDICATION
     Dosage: UNKNOWN
     Route: 048

REACTIONS (12)
  - Drug withdrawal syndrome [Unknown]
  - Irritability [Unknown]
  - Crime [Unknown]
  - Cyanosis [Unknown]
  - Intentional product use issue [Unknown]
  - Imprisonment [Unknown]
  - Overdose [Unknown]
  - Drug dependence [Unknown]
  - Respiratory arrest [Unknown]
  - Emotional distress [Unknown]
  - Unevaluable event [Unknown]
  - Drug abuse [Unknown]
